FAERS Safety Report 23766399 (Version 1)
Quarter: 2024Q2

REPORT INFORMATION
  Report Type: Report from Study
  Country: DE (occurrence: DE)
  Receive Date: 20240422
  Receipt Date: 20240422
  Transmission Date: 20240716
  Serious: Yes (Hospitalization)
  Sender: FDA-Public Use
  Company Number: DE-BAXTER-2024BAX016845

PATIENT
  Age: 39 Year
  Sex: Male

DRUGS (4)
  1. AMINO ACIDS\DEXTROSE\ELECTROLYTES NOS\SOYBEAN OIL [Suspect]
     Active Substance: AMINO ACIDS\DEXTROSE\ELECTROLYTES NOS\SOYBEAN OIL
     Indication: Parenteral nutrition
     Dosage: 1450 ML AT AN UNSPCIFIED FREQUENCY, ADMINISTERED VIA CENTRAL VENOUS ROUTE
     Route: 042
     Dates: start: 20240108, end: 20240415
  2. CERNEVIT [Suspect]
     Active Substance: VITAMINS
     Indication: Parenteral nutrition
     Dosage: 750 MG AT AN UNSPCIFIED FREQUENCY, ADMINISTERED VIA CENTRAL VENOUS ROUTE
     Route: 042
     Dates: start: 20231113, end: 20240415
  3. ELECTROLYTES NOS\MINERALS [Suspect]
     Active Substance: ELECTROLYTES NOS\MINERALS
     Indication: Parenteral nutrition
     Dosage: (MANUFACTURER: LABORATOIRE AGUETTANT S.A.S.) 10 ML AT AN UNSPCIFIED FREQUENCY, ADMINISTERED VIA CENT
     Route: 042
     Dates: start: 20231113, end: 20240415
  4. UNSPECIFIED INGREDIENT [Suspect]
     Active Substance: UNSPECIFIED INGREDIENT
     Route: 065

REACTIONS (3)
  - Chills [Unknown]
  - General physical health deterioration [Unknown]
  - Hypophagia [Unknown]

NARRATIVE: CASE EVENT DATE: 20240412
